FAERS Safety Report 9512499 (Version 2)
Quarter: 2017Q2

REPORT INFORMATION
  Report Type: Spontaneous
  Country: FR (occurrence: FR)
  Receive Date: 20130910
  Receipt Date: 20170602
  Transmission Date: 20170830
  Serious: Yes (Death)
  Sender: FDA-Public Use
  Company Number: FR-PFIZER INC-2013257871

PATIENT
  Age: 63 Year
  Sex: Male

DRUGS (12)
  1. KARDEGIC [Suspect]
     Active Substance: ASPIRIN LYSINE
     Dosage: 75 MG, 1X/DAY
     Route: 048
  2. ONDANSETRON [Concomitant]
     Active Substance: ONDANSETRON
  3. FLUOROURACILE PFIZER [Suspect]
     Active Substance: FLUOROURACIL
     Indication: SQUAMOUS CELL CARCINOMA
     Dosage: 650 MG BOLUS THEN 1600 MG DAILY
     Dates: start: 20130717, end: 20130718
  4. CISPLATIN MYLAN [Suspect]
     Active Substance: CISPLATIN
     Indication: SQUAMOUS CELL CARCINOMA
     Dosage: 65 MG, 1X/DAY
     Route: 042
     Dates: start: 20130717, end: 20130717
  5. SIMVASTATIN ARROW [Suspect]
     Active Substance: SIMVASTATIN
     Indication: DYSLIPIDAEMIA
     Dosage: 20 MG, 1X/DAY
     Route: 048
     Dates: end: 20130724
  6. SINTROM [Suspect]
     Active Substance: ACENOCOUMAROL
     Dosage: UNK
     Route: 048
     Dates: end: 20130724
  7. NEBILOX [Suspect]
     Active Substance: NEBIVOLOL HYDROCHLORIDE
     Dosage: 5 MG, 1X/DAY
     Route: 048
     Dates: end: 20130724
  8. EMEND [Concomitant]
     Active Substance: APREPITANT
  9. DOCETAXEL EBEWE [Suspect]
     Active Substance: DOCETAXEL
     Indication: SQUAMOUS CELL CARCINOMA
     Dosage: 64 MG, 1X/DAY
     Route: 042
     Dates: start: 20130717, end: 20130717
  10. CALCIUM LEVOFOLINATE [Concomitant]
     Active Substance: LEVOLEUCOVORIN CALCIUM
  11. DUROGESIC [Suspect]
     Active Substance: FENTANYL
     Indication: ANALGESIC INTERVENTION SUPPORTIVE THERAPY
     Dosage: UNK
     Route: 062
     Dates: end: 20130724
  12. SOLU-MEDROL [Concomitant]
     Active Substance: METHYLPREDNISOLONE SODIUM SUCCINATE

REACTIONS (8)
  - Neutropenia [Fatal]
  - Enterobacter infection [Fatal]
  - Enterobacter sepsis [Fatal]
  - Hypothermia [Fatal]
  - Leukopenia [Fatal]
  - Vomiting [Fatal]
  - Enterocolitis haemorrhagic [Fatal]
  - Lymphopenia [Fatal]

NARRATIVE: CASE EVENT DATE: 20130721
